FAERS Safety Report 4829174-5 (Version None)
Quarter: 2005Q4

REPORT INFORMATION
  Report Type: 
  Country: None (occurrence: None)
  Receive Date: 20051028
  Receipt Date: 20050826
  Transmission Date: 20060501
  Serious: No
  Sender: FDA-Public Use
  Company Number: COT_0205_2005

PATIENT
  Age: 76 Year
  Sex: Female
  Weight: 59.8748 kg

DRUGS (14)
  1. VENTAVIS [Suspect]
     Indication: PULMONARY HYPERTENSION
     Dosage: 5 MCG VARIABLE IH
     Route: 055
     Dates: start: 20050825
  2. VENTAVIS [Suspect]
     Indication: PULMONARY HYPERTENSION
     Dosage: 5 MCG VARIABLE IH
     Route: 055
     Dates: start: 20050825
  3. DIGOXIN [Concomitant]
  4. LASIX [Concomitant]
  5. SPIRIVA [Concomitant]
  6. ASPIRIN [Concomitant]
  7. ATARAX [Concomitant]
  8. SYNTHROID [Concomitant]
  9. ALDACTONE [Concomitant]
  10. MULTI-VITAMIN [Concomitant]
  11. AVANDIA [Concomitant]
  12. LIPITOR [Concomitant]
  13. FLOVENT [Concomitant]
  14. OXYGEN [Concomitant]

REACTIONS (3)
  - NAUSEA [None]
  - TRISMUS [None]
  - VOMITING [None]
